FAERS Safety Report 18581580 (Version 5)
Quarter: 2021Q4

REPORT INFORMATION
  Report Type: Report from Study
  Country: US (occurrence: US)
  Receive Date: 20201204
  Receipt Date: 20211207
  Transmission Date: 20220303
  Serious: Yes (Hospitalization, Other)
  Sender: FDA-Public Use
  Company Number: US-TAKEDA-2020TUS052800

PATIENT
  Sex: Male
  Weight: 11 kg

DRUGS (10)
  1. TEDUGLUTIDE [Suspect]
     Active Substance: TEDUGLUTIDE
     Indication: Short-bowel syndrome
     Dosage: 0.056 MILLILITER, QD
     Route: 058
     Dates: start: 20200903
  2. TEDUGLUTIDE [Suspect]
     Active Substance: TEDUGLUTIDE
     Indication: Short-bowel syndrome
     Dosage: 0.056 MILLILITER, QD
     Route: 058
     Dates: start: 20200903
  3. TEDUGLUTIDE [Suspect]
     Active Substance: TEDUGLUTIDE
     Indication: Short-bowel syndrome
     Dosage: 0.056 MILLILITER, QD
     Route: 058
     Dates: start: 20200903
  4. TEDUGLUTIDE [Suspect]
     Active Substance: TEDUGLUTIDE
     Indication: Short-bowel syndrome
     Dosage: 0.056 MILLILITER, QD
     Route: 058
     Dates: start: 20200903
  5. TEDUGLUTIDE [Suspect]
     Active Substance: TEDUGLUTIDE
     Dosage: 0.56 MILLIGRAM
     Route: 058
  6. TEDUGLUTIDE [Suspect]
     Active Substance: TEDUGLUTIDE
     Dosage: 0.56 MILLIGRAM
     Route: 058
  7. TEDUGLUTIDE [Suspect]
     Active Substance: TEDUGLUTIDE
     Dosage: 0.56 MILLIGRAM
     Route: 058
  8. TEDUGLUTIDE [Suspect]
     Active Substance: TEDUGLUTIDE
     Dosage: 0.56 MILLIGRAM
     Route: 058
  9. POWDERED TALC [Concomitant]
     Dosage: UNK
     Route: 065
  10. DUOCAL [Concomitant]
     Route: 065

REACTIONS (6)
  - Respiratory syncytial virus infection [Unknown]
  - Hospitalisation [Unknown]
  - Lyme disease [Unknown]
  - Weight increased [Unknown]
  - Vomiting [Unknown]
  - Accidental overdose [Unknown]
